FAERS Safety Report 5425514-7 (Version None)
Quarter: 2007Q3

REPORT INFORMATION
  Report Type: 
  Country: None (occurrence: None)
  Receive Date: 20070731
  Receipt Date: 20070405
  Transmission Date: 20080115
  Serious: No
  Sender: FDA-Public Use
  Company Number: US200704001659

PATIENT
  Sex: Female

DRUGS (9)
  1. BYETTA [Suspect]
     Indication: TYPE 2 DIABETES MELLITUS
     Dates: start: 20070331
  2. EXENATIDE PEN (EXENATIDE PEN) [Concomitant]
  3. INSULIN (INSULIN) [Concomitant]
  4. LYRICA [Concomitant]
  5. METFORMIN HCL [Concomitant]
  6. HYDROCHLOROTHIAZIDE [Concomitant]
  7. LOVASTATIN [Concomitant]
  8. LISINOPRIL [Concomitant]
  9. BENICAR [Concomitant]

REACTIONS (3)
  - CONTUSION [None]
  - FLUSHING [None]
  - SKIN DISCOLOURATION [None]
